FAERS Safety Report 4574623-3 (Version None)
Quarter: 2005Q1

REPORT INFORMATION
  Report Type: 
  Country: None (occurrence: None)
  Receive Date: 20050208
  Receipt Date: 20040621
  Transmission Date: 20050727
  Serious: No
  Sender: FDA-Public Use
  Company Number: US-GLAXOSMITHKLINE-A0515534A

PATIENT
  Sex: Female

DRUGS (2)
  1. PAXIL [Suspect]
     Indication: MOOD SWINGS
     Route: 048
  2. WELLBUTRIN [Suspect]
     Indication: MOOD SWINGS
     Dosage: 300MG PER DAY
     Route: 048

REACTIONS (5)
  - AFFECT LABILITY [None]
  - DRUG INEFFECTIVE [None]
  - LIBIDO DECREASED [None]
  - SEXUAL DYSFUNCTION [None]
  - WEIGHT INCREASED [None]
